FAERS Safety Report 5032264-8 (Version None)
Quarter: 2006Q2

REPORT INFORMATION
  Report Type: 
  Country: None (occurrence: None)
  Receive Date: 20060619
  Receipt Date: 20060608
  Transmission Date: 20061013
  Serious: Yes (Hospitalization, Other)
  Sender: FDA-Public Use
  Company Number: 2006-06-0554

PATIENT
  Age: 58 Year
  Sex: Male

DRUGS (1)
  1. INTEGRILIN [Suspect]
     Dosage: INTRAVENOUS
     Route: 042

REACTIONS (2)
  - BRAIN OEDEMA [None]
  - NEUROLOGICAL SYMPTOM [None]
